FAERS Safety Report 20931437 (Version 2)
Quarter: 2022Q2

REPORT INFORMATION
  Report Type: Other
  Country: DE (occurrence: None)
  Receive Date: 20220608
  Receipt Date: 20220610
  Transmission Date: 20220720
  Serious: Yes (Death, Hospitalization)
  Sender: FDA-Public Use
  Company Number: DE-ROCHE-3109849

PATIENT
  Age: 68 Year
  Sex: Male
  Weight: 65 kg

DRUGS (6)
  1. ATEZOLIZUMAB [Suspect]
     Active Substance: ATEZOLIZUMAB
     Indication: Hepatic cancer
     Dosage: DATE OF LAST APPLICATION PRIOR EVENT: 30/NOV/2021
     Route: 065
     Dates: start: 20210301, end: 20211201
  2. BEVACIZUMAB [Suspect]
     Active Substance: BEVACIZUMAB
     Indication: Hepatic cancer
     Dosage: DATE OF LAST APPLICATION PRIOR EVENT: 30/NOV/2021 (990 MG)
     Route: 065
     Dates: start: 20210614, end: 20211201
  3. AMLODIPINE [Concomitant]
     Active Substance: AMLODIPINE BESYLATE
     Dates: start: 2020
  4. VALSARTAN [Concomitant]
     Active Substance: VALSARTAN
     Dates: start: 2020
  5. BISOPROLOL [Concomitant]
     Active Substance: BISOPROLOL
     Dates: start: 2020
  6. TINZAPARIN SODIUM [Concomitant]
     Active Substance: TINZAPARIN SODIUM
     Dates: start: 20210301

REACTIONS (2)
  - Multiple organ dysfunction syndrome [Fatal]
  - Asthenia [Recovering/Resolving]

NARRATIVE: CASE EVENT DATE: 20211130
